FAERS Safety Report 7670121-9 (Version None)
Quarter: 2011Q3

REPORT INFORMATION
  Report Type: 
  Country: None (occurrence: None)
  Receive Date: 20110808
  Receipt Date: 20110726
  Transmission Date: 20111222
  Serious: Yes (Hospitalization)
  Sender: FDA-Public Use
  Company Number: US-CELGENEUS-163-21880-11073126

PATIENT
  Sex: Female

DRUGS (10)
  1. ALPRAZOLAM [Concomitant]
     Route: 065
  2. LIPITOR [Concomitant]
     Route: 065
  3. REVLIMID [Suspect]
     Indication: MULTIPLE MYELOMA
     Dosage: 15 MILLIGRAM
     Route: 048
     Dates: start: 20110111
  4. PRILOSEC [Concomitant]
     Route: 065
  5. CALCIUM CARBONATE [Concomitant]
     Route: 065
  6. COREG [Concomitant]
     Route: 065
  7. REVLIMID [Suspect]
     Dosage: 5 MILLIGRAM
     Route: 048
     Dates: start: 20110201
  8. VITAMIN D [Concomitant]
     Route: 065
  9. ASPIRIN [Concomitant]
     Route: 065
  10. LISINOPRIL [Concomitant]
     Route: 065

REACTIONS (2)
  - INFUSION RELATED REACTION [None]
  - PLATELET COUNT DECREASED [None]
